FAERS Safety Report 19986036 (Version 1)
Quarter: 2021Q4

REPORT INFORMATION
  Report Type: Other
  Country: BG (occurrence: BG)
  Receive Date: 20211022
  Receipt Date: 20211022
  Transmission Date: 20220303
  Serious: Yes (Other)
  Sender: FDA-Public Use
  Company Number: BG-BOEHRINGERINGELHEIM-2021-BI-132910

PATIENT
  Age: 68 Year
  Sex: Female

DRUGS (1)
  1. ALTEPLASE [Suspect]
     Active Substance: ALTEPLASE
     Indication: Product used for unknown indication
     Route: 065

REACTIONS (6)
  - Cerebrovascular accident [Unknown]
  - Thrombolysis [Unknown]
  - Organic brain syndrome [Unknown]
  - Quadriparesis [Unknown]
  - Hemiplegia [Unknown]
  - Gaze palsy [Unknown]
